FAERS Safety Report 15874606 (Version 1)
Quarter: 2019Q1

REPORT INFORMATION
  Report Type: Other
  Country: US (occurrence: US)
  Receive Date: 20190126
  Receipt Date: 20190126
  Transmission Date: 20190417
  Serious: No
  Sender: FDA-Public Use
  Company Number: US-ACORDA-ACO_152222_2018

PATIENT
  Sex: Female

DRUGS (7)
  1. OXYBUTYNIN. [Concomitant]
     Active Substance: OXYBUTYNIN CHLORIDE
     Indication: INFUSION
     Dosage: 5 MG, AT BEDTIME
     Route: 065
     Dates: start: 20180103
  2. BENADRYL [Concomitant]
     Active Substance: DIPHENHYDRAMINE HYDROCHLORIDE
     Indication: INFUSION
     Dosage: 50 MG, Q 3 MONTHS
     Route: 042
     Dates: start: 20180103
  3. OCREVUS [Concomitant]
     Active Substance: OCRELIZUMAB
     Indication: INFUSION
     Dosage: 600 MG, Q 3 MONTHS
     Route: 042
     Dates: start: 20180103
  4. OCREVUS [Concomitant]
     Active Substance: OCRELIZUMAB
     Dosage: 30 UNK, UNK
     Route: 065
  5. AMPYRA [Suspect]
     Active Substance: DALFAMPRIDINE
     Indication: MULTIPLE SCLEROSIS
     Dosage: 10 MG, Q 12 HRS
     Route: 065
     Dates: start: 20180119
  6. SOLU-MEDROL [Concomitant]
     Active Substance: METHYLPREDNISOLONE SODIUM SUCCINATE
     Indication: INFUSION
     Dosage: 100 MG, Q 3 MONTHS
     Route: 042
     Dates: start: 20180103
  7. BACLOFEN. [Concomitant]
     Active Substance: BACLOFEN
     Indication: INFUSION
     Dosage: 10 MG, 1 TABLET AT BED TIME
     Route: 048
     Dates: start: 20180103

REACTIONS (2)
  - Mobility decreased [Unknown]
  - Visual impairment [Unknown]
